FAERS Safety Report 8115306-2 (Version None)
Quarter: 2012Q1

REPORT INFORMATION
  Report Type: 
  Country: None (occurrence: None)
  Receive Date: 20120206
  Receipt Date: 20120127
  Transmission Date: 20120608
  Serious: Yes (Other)
  Sender: FDA-Public Use
  Company Number: US-US-EMD SERONO, INC.-7108369

PATIENT
  Sex: Female

DRUGS (1)
  1. REBIF [Suspect]
     Indication: MULTIPLE SCLEROSIS
     Route: 058
     Dates: start: 20070507

REACTIONS (5)
  - HAEMOGLOBIN DECREASED [None]
  - CEREBRAL ATROPHY [None]
  - TREMOR [None]
  - CHILLS [None]
  - MULTIPLE SCLEROSIS [None]
